FAERS Safety Report 7733231-3 (Version None)
Quarter: 2011Q3

REPORT INFORMATION
  Report Type: 
  Country: None (occurrence: None)
  Receive Date: 20110902
  Receipt Date: 20110902
  Transmission Date: 20111222
  Serious: Yes (Hospitalization)
  Sender: FDA-Public Use
  Company Number: None

PATIENT
  Sex: Male
  Weight: 95.2554 kg

DRUGS (1)
  1. CELEBREX [Suspect]
     Dosage: 200MG DAILY ORALLY
     Route: 048

REACTIONS (5)
  - PRURITUS GENERALISED [None]
  - ERYTHEMA [None]
  - DYSPNOEA [None]
  - VISION BLURRED [None]
  - LOSS OF CONSCIOUSNESS [None]
